FAERS Safety Report 20873996 (Version 9)
Quarter: 2022Q3

REPORT INFORMATION
  Report Type: Spontaneous
  Country: ES (occurrence: ES)
  Receive Date: 20220525
  Receipt Date: 20220907
  Transmission Date: 20221027
  Serious: Yes (Hospitalization, Other)
  Sender: FDA-Public Use
  Company Number: ES-LESVI-2022002012

PATIENT
  Age: 75 Year
  Sex: Male

DRUGS (39)
  1. REPAGLINIDE [Interacting]
     Active Substance: REPAGLINIDE
     Indication: Diabetes mellitus
     Dosage: 1/0/1
     Route: 065
  2. REPAGLINIDE [Interacting]
     Active Substance: REPAGLINIDE
     Dosage: 2 MILLIGRAM (2/2/1)
     Route: 048
  3. CLOPIDOGREL [Interacting]
     Active Substance: CLOPIDOGREL BISULFATE
     Indication: Cardiovascular disorder
     Dosage: 75 MILLIGRAM, QD (0/1/0, 2 YEARS AGO)
     Route: 048
  4. CLOPIDOGREL [Interacting]
     Active Substance: CLOPIDOGREL BISULFATE
     Indication: Cerebrovascular accident
     Dosage: UNK (0/1/0, 2 YEARS AGO)
     Route: 065
  5. CLOPIDOGREL [Interacting]
     Active Substance: CLOPIDOGREL BISULFATE
     Indication: Cardiac disorder
     Dosage: 75 MILLIGRAM, QD (1/0/0)
     Route: 065
  6. CLOPIDOGREL [Interacting]
     Active Substance: CLOPIDOGREL BISULFATE
     Dosage: 1 DOSAGE FORM, QD
     Route: 065
  7. METFORMIN [Interacting]
     Active Substance: METFORMIN HYDROCHLORIDE
     Indication: Diabetes mellitus
     Dosage: 1 GRAM, QOD (1/0/1)
     Route: 048
  8. METFORMIN [Interacting]
     Active Substance: METFORMIN HYDROCHLORIDE
     Dosage: 1 GRAM, BID (1/0/1)
     Route: 065
  9. METFORMIN [Interacting]
     Active Substance: METFORMIN HYDROCHLORIDE
     Dosage: 850 MILLIGRAM, BID (1/0/1)
     Route: 065
  10. METFORMIN [Interacting]
     Active Substance: METFORMIN HYDROCHLORIDE
     Dosage: 1 DOSAGE FORM, Q2D (1/0/1)
     Route: 065
  11. PANTOPRAZOLE [Interacting]
     Active Substance: PANTOPRAZOLE
     Indication: Abdominal pain upper
     Dosage: 40 MILLIGRAM, QD (1/0/0)
     Route: 048
  12. PANTOPRAZOLE [Interacting]
     Active Substance: PANTOPRAZOLE
     Indication: Gastrointestinal disorder prophylaxis
     Dosage: 1 DOSAGE FORM, QD (1/0/0)
     Route: 065
  13. PANTOPRAZOLE [Interacting]
     Active Substance: PANTOPRAZOLE
     Indication: Gastric disorder
  14. VILDAGLIPTIN [Interacting]
     Active Substance: VILDAGLIPTIN
     Indication: Diabetes mellitus
     Dosage: 50 MILLIGRAM, QOD (0/1/1)
     Route: 048
  15. VILDAGLIPTIN [Interacting]
     Active Substance: VILDAGLIPTIN
     Dosage: 50 MILLIGRAM, BID (50 MILLIGRAM, BID (0/1/1)  )
     Route: 065
  16. PREDNISONE [Interacting]
     Active Substance: PREDNISONE
     Indication: Inflammatory bowel disease
     Dosage: UNK, 0,5/0,5 THREEMONTHS AGO
     Route: 048
  17. PREDNISONE [Interacting]
     Active Substance: PREDNISONE
     Indication: Gastrointestinal inflammation
     Dosage: 0.5 DOSAGE FORM, Q2D (0,5/0,5)
     Route: 065
  18. ACETAMINOPHEN [Concomitant]
     Active Substance: ACETAMINOPHEN
     Indication: Pain
     Dosage: 1 GRAM, (ON REQUEST 1000 MILLIGRAM)
     Route: 048
  19. ACETAMINOPHEN [Concomitant]
     Active Substance: ACETAMINOPHEN
     Dosage: UNK (ON DEMAND)
     Route: 065
  20. ACETAMINOPHEN [Concomitant]
     Active Substance: ACETAMINOPHEN
     Dosage: AS NECESSARY
     Route: 065
  21. DONEPEZIL [Concomitant]
     Active Substance: DONEPEZIL
     Indication: Dementia
     Dosage: 10 MILLIGRAM, QD (1/0/0, ONE YEAR AGO)
     Route: 048
  22. DONEPEZIL [Concomitant]
     Active Substance: DONEPEZIL
     Dosage: UNK (1/0/0, ONE YEAR AGO)
     Route: 065
  23. DONEPEZIL [Concomitant]
     Active Substance: DONEPEZIL
     Dosage: 1 DOSAGE FORM, QD (1/0/0)
     Route: 065
  24. Calcio + vit d3 [Concomitant]
     Indication: Steroid therapy
     Dosage: UNK UNK, QD (1/0/0, THREEMONTHS AGO)
     Route: 065
  25. Calcio + vit d3 [Concomitant]
     Indication: Adrenocortical steroid therapy
     Dosage: UNK, QD (1000MG/800UI ), FREQUENCY OF ADMINISTRATION 1/0/0, FOR 3 MONTHS
     Route: 048
  26. Calcio + vit d3 [Concomitant]
     Indication: Steroid activity
     Dosage: 1 DOSAGE FORM, QD (1/0/0)
     Route: 065
  27. Calcio + vit d3 [Concomitant]
     Indication: Osteoporosis prophylaxis
  28. FOLIC ACID [Concomitant]
     Active Substance: FOLIC ACID
     Indication: Folate deficiency
     Dosage: 5 MILLIGRAM, QD (0/1/0)
     Route: 048
  29. FOLIC ACID [Concomitant]
     Active Substance: FOLIC ACID
     Indication: Hypovitaminosis
     Dosage: UNK (0/1/0)
     Route: 065
  30. FOLIC ACID [Concomitant]
     Active Substance: FOLIC ACID
     Dosage: 1 DOSAGE FORM, QD (0/1/0)
     Route: 065
  31. METFORMIN [Concomitant]
     Active Substance: METFORMIN HYDROCHLORIDE
     Indication: Folate deficiency
     Dosage: 5 MILLIGRAM (0/1/0)
     Route: 065
  32. PREDNISONE [Concomitant]
     Active Substance: PREDNISONE
     Indication: Inflammatory bowel disease
     Dosage: UNK, BID (0,5/0,5 THREEMONTHS AGO)
     Route: 065
  33. PREDNISONE [Concomitant]
     Active Substance: PREDNISONE
     Indication: Gastrointestinal inflammation
  34. PANTOPRAZOLE SODIUM [Concomitant]
     Active Substance: PANTOPRAZOLE SODIUM
     Indication: Gastrointestinal disorder prophylaxis
     Dosage: 40 MILLIGRAM, QD (1/0/0)
     Route: 065
  35. PANTOPRAZOLE SODIUM [Concomitant]
     Active Substance: PANTOPRAZOLE SODIUM
     Indication: Reflux gastritis
  36. REPAGLINIDE [Concomitant]
     Active Substance: REPAGLINIDE
     Indication: Diabetes mellitus
     Dosage: 2 MILLIGRAM, TID (2/2/1)
     Route: 065
  37. REPAGLINIDE [Concomitant]
     Active Substance: REPAGLINIDE
     Dosage: UNK,DOSE INCREASED
     Route: 065
  38. VILDAGLIPTIN [Concomitant]
     Active Substance: VILDAGLIPTIN
     Indication: Diabetes mellitus
     Dosage: UNK
     Route: 065
  39. VILDAGLIPTIN [Concomitant]
     Active Substance: VILDAGLIPTIN
     Dosage: 1 DOSAGE FORM, Q2W (0/1/1)
     Route: 065

REACTIONS (11)
  - Flatulence [Recovering/Resolving]
  - Anal incontinence [Recovering/Resolving]
  - Abdominal pain [Recovering/Resolving]
  - Diarrhoea [Recovering/Resolving]
  - Glycosylated haemoglobin increased [Recovering/Resolving]
  - Hyperglycaemia [Recovering/Resolving]
  - Blood triglycerides increased [Recovering/Resolving]
  - Crohn^s disease [Unknown]
  - Drug interaction [Recovered/Resolved]
  - Product prescribing issue [Recovering/Resolving]
  - Contraindication to medical treatment [Recovering/Resolving]
